FAERS Safety Report 25343338 (Version 2)
Quarter: 2025Q2

REPORT INFORMATION
  Report Type: Spontaneous
  Country: CN (occurrence: CN)
  Receive Date: 20250521
  Receipt Date: 20250527
  Transmission Date: 20250717
  Serious: Yes (Death, Life-Threatening, Hospitalization, Disabling, Other)
  Sender: PFIZER
  Company Number: CN-MLMSERVICE-20250514-PI503635-00270-1

PATIENT
  Age: 65 Year
  Sex: Female

DRUGS (4)
  1. METHYLPREDNISOLONE [Suspect]
     Active Substance: METHYLPREDNISOLONE
     Indication: Rheumatoid arthritis
  2. LEFLUNOMIDE [Concomitant]
     Active Substance: LEFLUNOMIDE
     Indication: Rheumatoid arthritis
  3. METHOTREXATE [Concomitant]
     Active Substance: METHOTREXATE
     Indication: Rheumatoid arthritis
  4. LOXOPROFEN [Concomitant]
     Active Substance: LOXOPROFEN
     Indication: Rheumatoid arthritis

REACTIONS (7)
  - Septic shock [Fatal]
  - Pneumonia pseudomonal [Unknown]
  - Bacterial sepsis [Unknown]
  - Peptostreptococcus infection [Unknown]
  - Psoas abscess [Unknown]
  - Cardiac failure [Unknown]
  - Bone abscess [Unknown]

NARRATIVE: CASE EVENT DATE: 20220101
